FAERS Safety Report 7666206 (Version 4)
Quarter: 2018Q4

REPORT INFORMATION
  Report Type: Spontaneous
  Country: DE (occurrence: DE)
  Receive Date: 20101112
  Receipt Date: 20180926
  Transmission Date: 20190205
  Serious: Yes (Death)
  Sender: FDA-Public Use
  Company Number: DE-JNJFOC-20101101864

PATIENT
  Age: 66 Year
  Sex: Male

DRUGS (8)
  1. AMLODIPINE [Concomitant]
     Active Substance: AMLODIPINE BESYLATE
     Indication: PRODUCT USED FOR UNKNOWN INDICATION
     Route: 048
  2. LASIX [Concomitant]
     Active Substance: FUROSEMIDE
     Indication: PRODUCT USED FOR UNKNOWN INDICATION
     Route: 048
  3. TAVOR (LORAZEPAM) [Suspect]
     Active Substance: LORAZEPAM
     Indication: VASCULAR DEMENTIA
     Route: 048
     Dates: start: 20090922
  4. NEXIUM [Concomitant]
     Active Substance: ESOMEPRAZOLE MAGNESIUM
     Indication: PRODUCT USED FOR UNKNOWN INDICATION
     Route: 048
  5. TAVOR (LORAZEPAM) [Suspect]
     Active Substance: LORAZEPAM
     Indication: VASCULAR DEMENTIA
     Route: 048
  6. TAVOR (LORAZEPAM) [Suspect]
     Active Substance: LORAZEPAM
     Indication: VASCULAR DEMENTIA
     Route: 048
     Dates: start: 20090910, end: 20090921
  7. TAVOR (LORAZEPAM) [Suspect]
     Active Substance: LORAZEPAM
     Indication: VASCULAR DEMENTIA
     Route: 048
     Dates: start: 20090909, end: 20090909
  8. RISPERDAL [Suspect]
     Active Substance: RISPERIDONE
     Indication: PRODUCT USED FOR UNKNOWN INDICATION
     Route: 048
     Dates: start: 20090924

REACTIONS (3)
  - Vomiting [Unknown]
  - Pneumonia [Fatal]
  - Diarrhoea [Unknown]

NARRATIVE: CASE EVENT DATE: 20090925
